FAERS Safety Report 8042597-9 (Version None)
Quarter: 2012Q1

REPORT INFORMATION
  Report Type: 
  Country: None (occurrence: None)
  Receive Date: 20120112
  Receipt Date: 20120111
  Transmission Date: 20120608
  Serious: Yes (Hospitalization, Other)
  Sender: FDA-Public Use
  Company Number: US-BAYER-2011-100719

PATIENT
  Age: 32 Year
  Sex: Female

DRUGS (2)
  1. BETASERON [Suspect]
     Dosage: 8 MIU, QOD
     Route: 058
     Dates: start: 20111012, end: 20111021
  2. BETASERON [Suspect]
     Indication: MULTIPLE SCLEROSIS
     Dosage: UNK
     Route: 058
     Dates: start: 20111001, end: 20111010

REACTIONS (6)
  - DEHYDRATION [None]
  - APHAGIA [None]
  - TREMOR [None]
  - DEPRESSION [None]
  - ABASIA [None]
  - ASTHENIA [None]
